FAERS Safety Report 8624980-3 (Version None)
Quarter: 2012Q3

REPORT INFORMATION
  Report Type: 
  Country: None (occurrence: None)
  Receive Date: 20120827
  Receipt Date: 20120823
  Transmission Date: 20120928
  Serious: No
  Sender: FDA-Public Use
  Company Number: US-BAYER-2012-088340

PATIENT
  Age: 61 Year
  Sex: Female
  Weight: 53.515 kg

DRUGS (15)
  1. CLONAZEPAM [Concomitant]
  2. HYDROCODONE BITARTRATE AND ACETAMINOPHEN [Concomitant]
  3. VALIUM [Concomitant]
  4. BUPROPION HCL [Concomitant]
  5. ACTHAR [Concomitant]
  6. ACYCLOVIR [Concomitant]
  7. VITAMIN E [Concomitant]
  8. BACLOFEN [Concomitant]
  9. AMPYRA [Concomitant]
  10. VITAMIN B-12 [Concomitant]
  11. IRON [Concomitant]
  12. MULTI-VITAMINS [Concomitant]
  13. AMANTADINE HCL [Concomitant]
  14. DIAZEPAM [Concomitant]
  15. BETASERON [Suspect]
     Dosage: UNK

REACTIONS (1)
  - DIZZINESS [None]
